FAERS Safety Report 5699792-3 (Version None)
Quarter: 2008Q2

REPORT INFORMATION
  Report Type: 
  Country: None (occurrence: None)
  Receive Date: 20080408
  Receipt Date: 20080408
  Transmission Date: 20081010
  Serious: Yes (Hospitalization)
  Sender: FDA-Public Use
  Company Number: None

PATIENT
  Sex: Female
  Weight: 59.9 kg

DRUGS (11)
  1. ARIMIDEX [Suspect]
     Dosage: 1 MG
  2. ACIPHEN [Concomitant]
  3. ASPIRIN [Concomitant]
  4. COZAAR [Concomitant]
  5. CRESTOR [Concomitant]
  6. GAS X [Concomitant]
  7. HYDROCHLOROTHIAZIDE [Concomitant]
  8. ISOSORBIDE DINITRATE [Concomitant]
  9. PLAVIX [Concomitant]
  10. TOPROL-XL [Concomitant]
  11. OSTEO-BI-FLEX [Concomitant]

REACTIONS (4)
  - HYPOKALAEMIA [None]
  - NAUSEA [None]
  - VIRAL DIARRHOEA [None]
  - VOMITING [None]
